FAERS Safety Report 6253908-9 (Version None)
Quarter: 2009Q3

REPORT INFORMATION
  Report Type: 
  Country: None (occurrence: None)
  Receive Date: 20090701
  Receipt Date: 20090701
  Transmission Date: 20100115
  Serious: Yes (Life-Threatening, Other)
  Sender: FDA-Public Use
  Company Number: None

PATIENT
  Age: 69 Year
  Sex: Female
  Weight: 84.8226 kg

DRUGS (2)
  1. HEPARIN [Suspect]
     Indication: CHEST DISCOMFORT
     Dosage: CONTAMINATED HEPARIN 3 ATTACKS
     Dates: start: 20081202
  2. HEPARIN [Suspect]
     Indication: DYSPNOEA
     Dosage: CONTAMINATED HEPARIN 3 ATTACKS
     Dates: start: 20081202

REACTIONS (1)
  - STENT PLACEMENT [None]
